FAERS Safety Report 5220484-9 (Version None)
Quarter: 2007Q1

REPORT INFORMATION
  Report Type: 
  Country: None (occurrence: None)
  Receive Date: 20070125
  Receipt Date: 20070125
  Transmission Date: 20070707
  Serious: Yes (Hospitalization)
  Sender: FDA-Public Use
  Company Number: None

PATIENT
  Sex: Male
  Weight: 70.3075 kg

DRUGS (6)
  1. DYAZIDE [Suspect]
     Indication: HYPERTENSION
     Dosage: PO
     Route: 048
  2. ALLOPURINOL SODIUM [Concomitant]
  3. PROSCAR [Concomitant]
  4. ZETIA [Concomitant]
  5. NORVASC [Concomitant]
  6. FOSINOPRIL SODIUM [Concomitant]

REACTIONS (1)
  - HYPERKALAEMIA [None]
